FAERS Safety Report 10665387 (Version 1)
Quarter: 2014Q4

REPORT INFORMATION
  Report Type: Spontaneous
  Country: US (occurrence: None)
  Receive Date: 20141208
  Receipt Date: 20141208
  Transmission Date: 20150529
  Serious: No
  Sender: FDA-Public Use
  Company Number: 2014TUS006254

PATIENT
  Age: 65 Year
  Sex: Male

DRUGS (17)
  1. TRIAMCINOLONE (TRIAMCINOLONE) [Concomitant]
  2. DILTIAZEM (DILTIAZEM) [Concomitant]
  3. FLONASE [Concomitant]
     Active Substance: FLUTICASONE PROPIONATE
  4. TOUCH ULTRA TEST STRIPS TESTS (ALL OTHER THERAPEUTIC PRODUCTS) [Concomitant]
  5. CYCLOSPORINE (CICLOSPORIN) [Concomitant]
     Active Substance: CYCLOSPORINE
  6. LEVEMIR [Concomitant]
     Active Substance: INSULIN DETEMIR
  7. EPIVIR-HBV (LAMIVUDINE) [Concomitant]
  8. PROMETHAZINE [Concomitant]
     Active Substance: PROMETHAZINE\PROMETHAZINE HYDROCHLORIDE
  9. TRAZODONE [Concomitant]
     Active Substance: TRAZODONE HYDROCHLORIDE
  10. VALIUM [Concomitant]
     Active Substance: DIAZEPAM
  11. DIAZEPAM (DIAZEPAM) [Concomitant]
     Active Substance: DIAZEPAM
  12. FLOMAX [Concomitant]
     Active Substance: TAMSULOSIN HYDROCHLORIDE
  13. PREDNISONE (PREDNISONE) [Concomitant]
     Active Substance: PREDNISONE
  14. BRINTELLIX [Suspect]
     Active Substance: VORTIOXETINE HYDROBROMIDE
     Indication: PRODUCT USED FOR UNKNOWN INDICATION
     Route: 048
     Dates: start: 20140513, end: 201405
  15. UNKNOWN MEDICATIONS (ALL OTHER THERAPEUTIC PRODUCTS) [Concomitant]
  16. DYAZIDE (HYDROCHLOROTHIAZIDE, TRIAMTERENE) [Concomitant]
  17. NOVOLOG [Concomitant]
     Active Substance: INSULIN ASPART

REACTIONS (1)
  - Skin lesion [None]

NARRATIVE: CASE EVENT DATE: 20140527
